FAERS Safety Report 19945080 (Version 2)
Quarter: 2022Q1

REPORT INFORMATION
  Report Type: Spontaneous
  Country: TR (occurrence: TR)
  Receive Date: 20211011
  Receipt Date: 20220202
  Transmission Date: 20220423
  Serious: Yes (Death, Other)
  Sender: FDA-Public Use
  Company Number: TR-ABBVIE-21K-161-4113300-00

PATIENT

DRUGS (2)
  1. VALPROIC ACID [Suspect]
     Active Substance: VALPROIC ACID
     Indication: Epilepsy
     Route: 064
  2. LAMOTRIGINE [Suspect]
     Active Substance: LAMOTRIGINE
     Indication: Epilepsy
     Route: 064

REACTIONS (3)
  - Foetal death [Fatal]
  - Polyhydramnios [Unknown]
  - Foetal exposure during pregnancy [Unknown]
